FAERS Safety Report 6607370-4 (Version None)
Quarter: 2010Q1

REPORT INFORMATION
  Report Type: 
  Country: None (occurrence: None)
  Receive Date: 20100301
  Receipt Date: 20100221
  Transmission Date: 20100710
  Serious: Yes (Hospitalization)
  Sender: FDA-Public Use
  Company Number: US-BIOGENIDEC-2010BI005757

PATIENT
  Age: 41 Year
  Sex: Male
  Weight: 68 kg

DRUGS (1)
  1. AVONEX [Suspect]
     Indication: MULTIPLE SCLEROSIS
     Route: 030
     Dates: start: 19970101

REACTIONS (6)
  - CEREBROVASCULAR ACCIDENT [None]
  - CONVULSION [None]
  - INFLUENZA LIKE ILLNESS [None]
  - INJECTION SITE ERYTHEMA [None]
  - MUSCLE CONTRACTURE [None]
  - TRANSIENT ISCHAEMIC ATTACK [None]
